FAERS Safety Report 25129732 (Version 1)
Quarter: 2025Q1

REPORT INFORMATION
  Report Type: Spontaneous
  Country: GB (occurrence: GB)
  Receive Date: 20250327
  Receipt Date: 20250327
  Transmission Date: 20250409
  Serious: Yes (Other)
  Sender: PFIZER
  Company Number: GB-PFIZER INC-202500064804

PATIENT
  Age: 68 Year
  Sex: Female

DRUGS (1)
  1. ELREXFIO [Suspect]
     Active Substance: ELRANATAMAB-BCMM

REACTIONS (2)
  - Pneumonia respiratory syncytial viral [Recovered/Resolved]
  - Hypogammaglobulinaemia [Recovered/Resolved]
